FAERS Safety Report 5749107-7 (Version None)
Quarter: 2008Q2

REPORT INFORMATION
  Report Type: 
  Country: None (occurrence: None)
  Receive Date: 20080522
  Receipt Date: 20080513
  Transmission Date: 20081010
  Serious: Yes (Hospitalization)
  Sender: FDA-Public Use
  Company Number: 2008S1008114

PATIENT
  Age: 74 Year
  Sex: Male

DRUGS (2)
  1. ASPIRIN [Suspect]
     Indication: ANTIPLATELET THERAPY
     Dosage: 100 MG; DAILY
  2. TICLOPIDINE HYDROCHLORIDE [Suspect]
     Indication: ANTIPLATELET THERAPY
     Dosage: 200 MG; DAILY

REACTIONS (2)
  - ANGINA PECTORIS [None]
  - IN-STENT CORONARY ARTERY RESTENOSIS [None]
